FAERS Safety Report 13536637 (Version 1)
Quarter: 2017Q2

REPORT INFORMATION
  Report Type: Spontaneous
  Country: US (occurrence: US)
  Receive Date: 20170511
  Receipt Date: 20170511
  Transmission Date: 20170830
  Serious: Yes (Other)
  Sender: FDA-Public Use
  Company Number: US-BAYER-2017-088176

PATIENT
  Age: 79 Year
  Sex: Female

DRUGS (1)
  1. ALEVE [Suspect]
     Active Substance: NAPROXEN SODIUM
     Indication: PAIN
     Dosage: 2 DF, QD, NOON
     Route: 048
     Dates: start: 20170509

REACTIONS (2)
  - Hypertension [Unknown]
  - Euphoric mood [Recovering/Resolving]

NARRATIVE: CASE EVENT DATE: 20170509
